FAERS Safety Report 18227552 (Version 1)
Quarter: 2020Q3

REPORT INFORMATION
  Report Type: Other
  Country: GB (occurrence: GB)
  Receive Date: 20200903
  Receipt Date: 20200903
  Transmission Date: 20201103
  Serious: Yes (Disabling, Other)
  Sender: FDA-Public Use
  Company Number: GB-MACLEODS PHARMACEUTICALS US LTD-MAC2020027869

PATIENT

DRUGS (14)
  1. SPIRONOLACTONE. [Concomitant]
     Active Substance: SPIRONOLACTONE
     Indication: PRODUCT USED FOR UNKNOWN INDICATION
     Dosage: 25 MILLIGRAM, QD,INSTALMENTS: DISPENSE WEEKLY. EVERY MORNING (FOR HEART)
     Route: 048
     Dates: start: 20200608
  2. FOLIC ACID. [Concomitant]
     Active Substance: FOLIC ACID
     Indication: PRODUCT USED FOR UNKNOWN INDICATION
     Dosage: 5 MILLIGRAM, QD, INSTALMENTS DISPENSE WEEKLY. VITAMIN
     Route: 048
     Dates: start: 20200608
  3. ATORVASTATIN [Concomitant]
     Active Substance: ATORVASTATIN
     Indication: BLOOD CHOLESTEROL INCREASED
     Dosage: 20 MILLIGRAM, QD, INSTALMENTS: DISPENSE WEEKLY. IN THE MORNING
     Route: 048
     Dates: start: 20200608
  4. SODIUM CHLORIDE. [Concomitant]
     Active Substance: SODIUM CHLORIDE
     Indication: PRODUCT USED FOR UNKNOWN INDICATION
     Dosage: 0.9 PERCENT, IRRIGATION SOLUTION. AS DIRECT
     Route: 065
     Dates: start: 20200620
  5. COLECALCIFEROL [Concomitant]
     Active Substance: CHOLECALCIFEROL
     Indication: VITAMIN SUPPLEMENTATION
     Dosage: 800 INTERNATIONAL UNIT, QD, INSTALMENTS: DISPENSE WEEKLY
     Route: 048
     Dates: start: 20200608
  6. ENALAPRIL [Concomitant]
     Active Substance: ENALAPRIL
     Indication: BLOOD PRESSURE INCREASED
     Dosage: 2.5 MILLIGRAM, QD, INSTALMENTS DISPENSE WEEKLY
     Route: 048
     Dates: start: 20200608
  7. SERTRALINE [Concomitant]
     Active Substance: SERTRALINE HYDROCHLORIDE
     Indication: AFFECTIVE DISORDER
     Dosage: 100 MILLIGRAM, QD,  INSTALMENTS DISPENSE WEEKLY
     Route: 048
     Dates: start: 20200608, end: 20200626
  8. PARACETAMOL [Concomitant]
     Active Substance: ACETAMINOPHEN
     Indication: PAIN
     Dosage: 500 MILLIGRAM, 1 TO 2 TABLET(S) EVERY FOUR TO SIX HOURS, MAXIMUM 8 TABLETS IN 24 HOURS
     Route: 048
     Dates: start: 20200617
  9. SERTRALINE [Concomitant]
     Active Substance: SERTRALINE HYDROCHLORIDE
     Dosage: 50 MILLIGRAM, QD,  FOR 7 DAYS THEN STOP
     Route: 048
     Dates: start: 20200608
  10. MAIZE STARCH [Concomitant]
     Indication: PRODUCT USED FOR UNKNOWN INDICATION
     Dosage: UNK, AS DIRECTED (THICKENER)
     Route: 065
     Dates: start: 20200608
  11. BISOPROLOL [Concomitant]
     Active Substance: BISOPROLOL
     Indication: BLOOD PRESSURE INCREASED
     Dosage: 1.25 MILLIGRAM, QD, INSTALMENTS DISPENSE WEEKLY
     Route: 048
     Dates: start: 20200608
  12. DONEPEZIL. [Suspect]
     Active Substance: DONEPEZIL
     Indication: DEMENTIA
     Dosage: 10 MILLIGRAM
     Route: 048
  13. EDOXABAN [Concomitant]
     Active Substance: EDOXABAN TOSYLATE
     Indication: ATRIAL FIBRILLATION
     Dosage: 60 MILLIGRAM, QD, INSTALMENTS: DISPENSE WEEKLY. IN THE MORNING (TO THIN BLOOD FOR AF)
     Route: 048
     Dates: start: 20200608
  14. FUROSEMIDE. [Concomitant]
     Active Substance: FUROSEMIDE
     Indication: FLUID RETENTION
     Dosage: 20 MILLIGRAM, QD,  INSTALMENTS: DISPENSE WEEKLY. EVERY MORNING
     Route: 065
     Dates: start: 20200608

REACTIONS (3)
  - Sedation [Recovered/Resolved]
  - Diarrhoea [Recovered/Resolved]
  - Anal incontinence [Recovered/Resolved]

NARRATIVE: CASE EVENT DATE: 20200624
